FAERS Safety Report 9701663 (Version 1)
Quarter: 2013Q4

REPORT INFORMATION
  Report Type: Spontaneous
  Country: US (occurrence: US)
  Receive Date: 20131119
  Receipt Date: 20131119
  Transmission Date: 20140711
  Serious: Yes (Other)
  Sender: FDA-Public Use
  Company Number: US-ORACLE-2012S1000008

PATIENT
  Age: 53 Year
  Sex: Male

DRUGS (6)
  1. KRYSTEXXA INJECTION [Suspect]
     Indication: GOUT
     Route: 042
     Dates: start: 20120118, end: 20120202
  2. SOLUMEDROL [Concomitant]
     Indication: PREMEDICATION
     Route: 042
     Dates: end: 20120202
  3. BENADRYL /00945501/ [Concomitant]
     Indication: PREMEDICATION
     Dates: end: 20120202
  4. CYMBALTA [Concomitant]
     Indication: DEPRESSION
     Dates: start: 201102
  5. PRAVACHOL [Concomitant]
     Indication: BLOOD CHOLESTEROL INCREASED
     Dates: start: 20101021
  6. PREDNISONE [Concomitant]
     Indication: GOUT
     Dates: start: 20110414

REACTIONS (1)
  - Anaphylactic shock [Unknown]
